FAERS Safety Report 16693544 (Version 3)
Quarter: 2020Q3

REPORT INFORMATION
  Report Type: Spontaneous
  Country: US (occurrence: US)
  Receive Date: 20190812
  Receipt Date: 20200926
  Transmission Date: 20201102
  Serious: Yes (Death, Other)
  Sender: FDA-Public Use
  Company Number: US-AMGEN INC.-USASP2019126048

PATIENT

DRUGS (1)
  1. AIMOVIG [Suspect]
     Active Substance: ERENUMAB-AOOE
     Indication: MIGRAINE
     Dosage: AT LEAST ONE INJECTIONOF 70MG OR 140MG
     Route: 065

REACTIONS (20)
  - Dysphagia [Unknown]
  - Feeling abnormal [Unknown]
  - Injection site pain [Unknown]
  - Rheumatoid arthritis [Fatal]
  - Therapeutic response shortened [Unknown]
  - Menstruation irregular [Unknown]
  - Hypoaesthesia [Unknown]
  - Paraesthesia [Unknown]
  - Drug ineffective [Unknown]
  - Hot flush [Unknown]
  - Dizziness [Unknown]
  - Asthenia [Unknown]
  - Nausea [Unknown]
  - Constipation [Unknown]
  - Fatigue [Unknown]
  - Muscle spasms [Unknown]
  - Injection site reaction [Unknown]
  - Pneumonia [Fatal]
  - Migraine [Unknown]
  - Hypersensitivity [Unknown]
